FAERS Safety Report 9264259 (Version 1)
Quarter: 2013Q2

REPORT INFORMATION
  Report Type: Spontaneous
  Country: GB (occurrence: GB)
  Receive Date: 20130430
  Receipt Date: 20130430
  Transmission Date: 20140414
  Serious: Yes (Other)
  Sender: FDA-Public Use
  Company Number: PHHY2013GB040173

PATIENT
  Age: 77 Year
  Sex: Male

DRUGS (11)
  1. METHOTREXATE [Suspect]
     Indication: CROHN^S DISEASE
  2. IMIQUIMOD [Interacting]
     Indication: BASAL CELL CARCINOMA
     Route: 061
     Dates: start: 20130307, end: 20130411
  3. WARFARIN [Concomitant]
  4. ALENDRONATE [Concomitant]
  5. DIORALYTE [Concomitant]
  6. LOPERAMIDE [Concomitant]
  7. SEREVENT [Concomitant]
  8. TRAZODONE [Concomitant]
  9. CARBOCISTEINE [Concomitant]
  10. ADCAL-D3 [Concomitant]
  11. AMOXICILLIN [Concomitant]

REACTIONS (2)
  - Pancytopenia [Unknown]
  - Drug interaction [Unknown]
